FAERS Safety Report 8789729 (Version 1)
Quarter: 2012Q4

REPORT INFORMATION
  Report Type: Spontaneous
  Country: US (occurrence: None)
  Receive Date: 20120911
  Receipt Date: 20120911
  Transmission Date: 20130627
  Serious: Yes (Life-Threatening, Hospitalization)
  Sender: FDA-Public Use
  Company Number: None

PATIENT
  Age: 38 Year
  Sex: Female
  Weight: 70 kg

DRUGS (6)
  1. TOCILIZUMAB [Suspect]
     Indication: RHEUMATOID ARTHRITIS
     Route: 042
     Dates: start: 20110205, end: 20110426
  2. NAPROXEN [Concomitant]
  3. METHYLPREDNISOLONE [Concomitant]
  4. ASA [Concomitant]
  5. NEXIUM [Concomitant]
  6. LASIX [Concomitant]

REACTIONS (2)
  - Duodenal ulcer perforation [None]
  - Peritonitis [None]
